FAERS Safety Report 4359317-1 (Version None)
Quarter: 2004Q2

REPORT INFORMATION
  Report Type: 
  Country: None (occurrence: None)
  Receive Date: 20040512
  Receipt Date: 20040504
  Transmission Date: 20050107
  Serious: No
  Sender: FDA-Public Use
  Company Number: 04H-163-0259618-00

PATIENT
  Age: 62 Year
  Sex: Female

DRUGS (3)
  1. LIDOCAINE HCL 2% INJECTION, USP, 5ML VIAL (LIDOCAINE HYDROCHLORIDE INJ [Suspect]
     Indication: ANAESTHESIA
     Dosage: 3 ML, ONCE, INFUSION, OTHER
     Route: 050
  2. MIDAZOLAM HCL [Concomitant]
  3. TETRACAINE POLYGYL STERILE OPHTHALMIC SOLUTION [Concomitant]

REACTIONS (5)
  - CONJUNCTIVAL OEDEMA [None]
  - EXOPHTHALMOS [None]
  - EYE PAIN [None]
  - INTRAOCULAR PRESSURE INCREASED [None]
  - OCULAR RETROBULBAR HAEMORRHAGE [None]
